FAERS Safety Report 8295533 (Version 2)
Quarter: 2012Q4

REPORT INFORMATION
  Report Type: 
  Country: US (occurrence: US)
  Receive Date: 20111216
  Receipt Date: 20121218
  Transmission Date: 20130627
  Serious: No
  Sender: FDA-Public Use
  Company Number: US-BRISTOL-MYERS SQUIBB COMPANY-15519754

PATIENT
  Age: 25 Year
  Sex: Female
  Weight: 53.07 kg

DRUGS (34)
  1. ABILIFY [Suspect]
     Indication: BORDERLINE PERSONALITY DISORDER
     Dosage: Dose:5mg,Q am.Dose:20mg Daily.
     Route: 048
     Dates: start: 2002, end: 200710
  2. ABILIFY [Suspect]
     Indication: BIPOLAR I DISORDER
     Dosage: Dose:5mg,Q am.Dose:20mg Daily.
     Route: 048
     Dates: start: 2002, end: 200710
  3. ZYPREXA [Suspect]
     Indication: BIPOLAR I DISORDER
     Dosage: HS,2.5mg,PRN.
  4. ZYPREXA [Suspect]
     Indication: BORDERLINE PERSONALITY DISORDER
     Dosage: HS,2.5mg,PRN.
  5. RISPERDAL [Suspect]
  6. CLONAZEPAM [Concomitant]
  7. IBUPROFEN [Concomitant]
     Route: 048
  8. VICODIN [Concomitant]
     Indication: DYSMENORRHOEA
  9. DEPAKOTE [Concomitant]
     Dosage: TID.Dose:1000mg daily, Tabs. 250mg 3times a day.500mg one in mrng ,and two in every aftn.
     Route: 048
  10. PREVACID [Concomitant]
  11. ARTANE [Concomitant]
     Indication: EXTRAPYRAMIDAL DISORDER
     Dosage: TID,PRN.
  12. REMERON [Concomitant]
  13. SEROQUEL [Concomitant]
  14. NEURONTIN [Concomitant]
     Dosage: 1-2Caps.dose:600mg, 1 tabs daily at bed time.
     Route: 048
  15. ISONIAZID [Concomitant]
     Dosage: 1 caps.
     Route: 048
  16. MULTIVITAMIN [Concomitant]
     Dosage: 1DF:1 tab
     Route: 048
  17. RIFAMPIN [Concomitant]
     Dosage: 1 Caps.
     Route: 048
  18. ZANAFLEX [Concomitant]
     Dosage: 1 Tabs
     Route: 048
  19. CEREFOLIN [Concomitant]
  20. LOESTRIN [Concomitant]
     Dosage: 1DF: 1 tab.1mg 20mcg
  21. ROBAXIN [Concomitant]
  22. VICOPROFEN [Concomitant]
     Dosage: 1df:7.5-200mg,tab
One tab every 6-8hrs.
     Route: 048
  23. OXYCODONE HCL [Concomitant]
     Dosage: 1DF: 180 (5mg) 1 tab
     Route: 048
  24. CYMBALTA [Concomitant]
     Route: 048
  25. BACLOFEN [Concomitant]
     Dosage: Tab
     Route: 048
  26. VITAMIN B COMPLEX [Concomitant]
     Dosage: 1df:1tab
     Route: 048
  27. GABAPENTIN [Concomitant]
     Indication: INSOMNIA
     Dosage: Dose:1 tab at bedtime.aslo taken 100mg caps tiwce a day As needed. 300mg caps three times a day
     Route: 048
  28. GABAPENTIN [Concomitant]
     Indication: ANXIETY
     Dosage: Dose:1 tab at bedtime.aslo taken 100mg caps tiwce a day As needed. 300mg caps three times a day
     Route: 048
  29. WELLBUTRIN [Concomitant]
  30. SELENIUM [Concomitant]
  31. BACTRIM DS [Concomitant]
     Dosage: 1DF:1 800mg-160mg20
     Route: 048
  32. BACTROBAN [Concomitant]
     Dosage: 1DF: 2%
     Route: 061
  33. DULOXETINE HCL [Concomitant]
     Route: 048
  34. MELOXICAM [Concomitant]
     Dosage: 1 tab Qty30
     Route: 048

REACTIONS (43)
  - Extrapyramidal disorder [Not Recovered/Not Resolved]
  - Anxiety [Unknown]
  - Agitation [Unknown]
  - Poor quality sleep [Unknown]
  - Photosensitivity reaction [Unknown]
  - Vision blurred [Recovering/Resolving]
  - Weight decreased [Unknown]
  - Dizziness [Unknown]
  - Gastritis [Recovered/Resolved]
  - Pain [Unknown]
  - Movement disorder [None]
  - Grimacing [None]
  - Excessive eye blinking [None]
  - Dyskinesia [None]
  - Gait disturbance [None]
  - Oesophageal spasm [None]
  - Feeling jittery [None]
  - Irritability [None]
  - Panic attack [None]
  - Bruxism [None]
  - Restlessness [None]
  - Muscle spasms [None]
  - Dysphagia [None]
  - Mania [None]
  - Memory impairment [None]
  - Depression [None]
  - Drug ineffective [None]
  - Dyspepsia [None]
  - Nausea [None]
  - Inflammation [None]
  - Gastrooesophageal reflux disease [None]
  - Product taste abnormal [None]
  - Pregnancy [None]
  - Maternal exposure during pregnancy [None]
  - Caesarean section [None]
  - Neck pain [None]
  - Musculoskeletal pain [None]
  - Spinal pain [None]
  - Arthralgia [None]
  - Pain in extremity [None]
  - Arthralgia [None]
  - Chorea [None]
  - Hiatus hernia [None]
